FAERS Safety Report 5017559-6 (Version None)
Quarter: 2006Q2

REPORT INFORMATION
  Report Type: 
  Country: None (occurrence: None)
  Receive Date: 20060601
  Receipt Date: 20060601
  Transmission Date: 20061013
  Serious: Yes (Hospitalization)
  Sender: FDA-Public Use
  Company Number: None

PATIENT
  Age: 42 Year
  Sex: Male
  Weight: 101 kg

DRUGS (2)
  1. MORPHINE SUSTAINED ACTING 60MG [Suspect]
     Indication: PAIN MANAGEMENT
     Dosage: BID PO
     Route: 048
  2. MORPHINE IMMEDIATE ACTING 10MG [Suspect]
     Dosage: Q 4 HOURS PRN

REACTIONS (5)
  - HYPERHIDROSIS [None]
  - LETHARGY [None]
  - LOSS OF CONSCIOUSNESS [None]
  - OXYGEN SATURATION DECREASED [None]
  - RESPIRATORY DEPRESSION [None]
